FAERS Safety Report 24209904 (Version 1)
Quarter: 2024Q3

REPORT INFORMATION
  Report Type: Spontaneous
  Country: US (occurrence: US)
  Receive Date: 20240814
  Receipt Date: 20240814
  Transmission Date: 20241017
  Serious: No
  Sender: ROCHE
  Company Number: US-ROCHE-10000054523

PATIENT
  Sex: Female
  Weight: 51.25 kg

DRUGS (4)
  1. ESBRIET [Suspect]
     Active Substance: PIRFENIDONE
     Indication: Idiopathic pulmonary fibrosis
     Dosage: 3 PILLS 3 TIMES DAILY
     Route: 048
     Dates: start: 202402, end: 20240616
  2. ESBRIET [Suspect]
     Active Substance: PIRFENIDONE
     Dosage: TAKES 1 PILL 3 TIMES A DAY
     Route: 048
     Dates: start: 20240617
  3. ANORO ELLIPTA [Suspect]
     Active Substance: UMECLIDINIUM BROMIDE\VILANTEROL TRIFENATATE
     Indication: Idiopathic pulmonary fibrosis
     Route: 055
  4. TRELEGY ELLIPTA [Suspect]
     Active Substance: FLUTICASONE FUROATE\UMECLIDINIUM BROMIDE\VILANTEROL TRIFENATATE
     Indication: Idiopathic pulmonary fibrosis
     Route: 055

REACTIONS (8)
  - Fatigue [Unknown]
  - Weight decreased [Not Recovered/Not Resolved]
  - Illness [Unknown]
  - Ageusia [Unknown]
  - Dysphagia [Recovering/Resolving]
  - Candida infection [Recovering/Resolving]
  - Burn oral cavity [Unknown]
  - Tongue blistering [Unknown]
